FAERS Safety Report 5677329-2 (Version None)
Quarter: 2008Q1

REPORT INFORMATION
  Report Type: 
  Country: None (occurrence: None)
  Receive Date: 20080324
  Receipt Date: 20080314
  Transmission Date: 20080703
  Serious: Yes (Hospitalization)
  Sender: FDA-Public Use
  Company Number: US-MERCK-0705USA05357

PATIENT
  Age: 49 Year
  Sex: Female

DRUGS (1)
  1. FOSAMAX [Suspect]
     Indication: OSTEOPOROSIS
     Route: 048
     Dates: start: 20020517, end: 20060501

REACTIONS (7)
  - HYPERTENSION [None]
  - JAW DISORDER [None]
  - OEDEMA MOUTH [None]
  - ORAL PAIN [None]
  - PAIN IN JAW [None]
  - SUBARACHNOID HAEMORRHAGE [None]
  - TOOTH LOSS [None]
